FAERS Safety Report 14047291 (Version 2)
Quarter: 2017Q4

REPORT INFORMATION
  Report Type: Spontaneous
  Country: ES (occurrence: ES)
  Receive Date: 20171005
  Receipt Date: 20171031
  Transmission Date: 20180321
  Serious: Yes (Hospitalization, Other)
  Sender: FDA-Public Use
  Company Number: ES-GILEAD-2017-0296775

PATIENT
  Sex: Male
  Weight: 67 kg

DRUGS (4)
  1. HARVONI [Suspect]
     Active Substance: LEDIPASVIR\SOFOSBUVIR
     Indication: CHRONIC HEPATITIS C
     Dosage: UNK
     Route: 065
     Dates: end: 2017
  2. OLANZAPIN [Concomitant]
     Active Substance: OLANZAPINE
     Dosage: 10
  3. IPRATROPIO [Concomitant]
     Active Substance: IPRATROPIUM BROMIDE
  4. SALBUTAMOL [Concomitant]
     Active Substance: ALBUTEROL

REACTIONS (1)
  - Cerebral haemorrhage [Recovered/Resolved]
